FAERS Safety Report 9935310 (Version 4)
Quarter: 2014Q2

REPORT INFORMATION
  Report Type: Report from Study
  Country: AT (occurrence: AT)
  Receive Date: 20140228
  Receipt Date: 20140411
  Transmission Date: 20141212
  Serious: Yes (Other)
  Sender: FDA-Public Use
  Company Number: AT-US-EMD SERONO, INC.-7272829

PATIENT
  Age: 4 Year
  Sex: Male
  Weight: 11 kg

DRUGS (4)
  1. SAIZEN [Suspect]
     Indication: GROWTH HORMONE DEFICIENCY
     Route: 058
     Dates: start: 20140129
  2. MUCOSOLVAN                         /00546001/ [Suspect]
     Indication: RESPIRATORY TRACT INFECTION
     Route: 048
     Dates: start: 20140225, end: 20140225
  3. PARKEMED [Suspect]
     Indication: RESPIRATORY TRACT INFECTION
     Route: 054
     Dates: start: 201402
  4. MUCOSPAS [Suspect]
     Indication: RESPIRATORY TRACT INFECTION
     Route: 048
     Dates: start: 20140224, end: 20140225

REACTIONS (1)
  - Hypersensitivity [Recovered/Resolved]
